FAERS Safety Report 12548994 (Version 2)
Quarter: 2017Q2

REPORT INFORMATION
  Report Type: Report from Study
  Country: US (occurrence: US)
  Receive Date: 20160712
  Receipt Date: 20170403
  Transmission Date: 20170830
  Serious: Yes (Hospitalization, Other)
  Sender: FDA-Public Use
  Company Number: PHHY2016US079834

PATIENT
  Age: 35 Year
  Sex: Female
  Weight: 65 kg

DRUGS (5)
  1. PHENERGAN [Concomitant]
     Active Substance: PROMETHAZINE HYDROCHLORIDE
     Indication: NAUSEA
     Dosage: 25 MG, QD (PRN)
     Route: 065
     Dates: start: 20160525
  2. GILENYA [Suspect]
     Active Substance: FINGOLIMOD HYDROCHLORIDE
     Indication: MULTIPLE SCLEROSIS
     Dosage: 0.5 MG, QD
     Route: 048
     Dates: start: 20160112, end: 20160627
  3. AVONEX [Concomitant]
     Active Substance: INTERFERON BETA-1A
     Indication: MULTIPLE SCLEROSIS
     Dosage: 30 UG, QW
     Route: 065
     Dates: start: 20160627
  4. MS CONTIN [Concomitant]
     Active Substance: MORPHINE SULFATE
     Indication: PAIN
     Dosage: 15 MG, Q12H
     Route: 065
     Dates: start: 20160523
  5. AMPYRA [Concomitant]
     Active Substance: DALFAMPRIDINE
     Indication: GAIT DISTURBANCE
     Dosage: 10 MG, Q12H
     Route: 065
     Dates: start: 20160318

REACTIONS (10)
  - Heart rate decreased [Unknown]
  - Musculoskeletal pain [Unknown]
  - Supraventricular tachycardia [Recovered/Resolved]
  - Fatigue [Unknown]
  - Electrocardiogram T wave abnormal [Unknown]
  - Anxiety [Recovered/Resolved]
  - Sinus tachycardia [Recovered/Resolved]
  - Electrocardiogram ST segment abnormal [Unknown]
  - Dizziness [Recovered/Resolved]
  - Subendocardial ischaemia [Unknown]

NARRATIVE: CASE EVENT DATE: 20160112
